FAERS Safety Report 8274171-3 (Version None)
Quarter: 2012Q2

REPORT INFORMATION
  Report Type: 
  Country: None (occurrence: None)
  Receive Date: 20120409
  Receipt Date: 20120327
  Transmission Date: 20120825
  Serious: Yes (Other)
  Sender: FDA-Public Use
  Company Number: 2012P1011125

PATIENT
  Age: 4 Year
  Sex: Female

DRUGS (1)
  1. ALBENDAZOLE (NO PREF. NAME) [Suspect]
     Indication: ASCARIASIS
     Dosage: 400 MG;
     Dates: start: 20120211, end: 20120213

REACTIONS (1)
  - HALLUCINATION, VISUAL [None]
